FAERS Safety Report 14272419 (Version 2)
Quarter: 2018Q1

REPORT INFORMATION
  Report Type: Report from Study
  Country: BR (occurrence: BR)
  Receive Date: 20171211
  Receipt Date: 20180103
  Transmission Date: 20180508
  Serious: Yes (Life-Threatening, Other)
  Sender: FDA-Public Use
  Company Number: PHHY2017BR178335

PATIENT
  Sex: Female
  Weight: 62 kg

DRUGS (9)
  1. PRELONE [Concomitant]
     Active Substance: PREDNISOLONE
     Indication: INCREASED UPPER AIRWAY SECRETION
     Route: 065
  2. CORTISON [Concomitant]
     Active Substance: CORTISONE ACETATE
     Indication: INCREASED UPPER AIRWAY SECRETION
     Route: 065
  3. SANDOSTATIN [Suspect]
     Active Substance: OCTREOTIDE ACETATE
     Indication: ACROMEGALY
     Route: 058
  4. SANDOSTATIN LAR DEPOT [Suspect]
     Active Substance: OCTREOTIDE ACETATE
     Indication: ACROMEGALY
     Dosage: 30 MG, QMO
     Route: 030
     Dates: start: 200405
  5. CABERGOLINE. [Concomitant]
     Active Substance: CABERGOLINE
     Indication: ACROMEGALY
     Route: 065
  6. PROLIA [Concomitant]
     Active Substance: DENOSUMAB
     Indication: OSTEOPOROSIS
     Route: 065
  7. LORATADINE. [Concomitant]
     Active Substance: LORATADINE
     Indication: INCREASED UPPER AIRWAY SECRETION
     Route: 065
  8. VITAMIN D [Concomitant]
     Active Substance: CHOLECALCIFEROL
     Indication: OSTEOPOROSIS
     Route: 065
  9. ATORVASTATIN [Concomitant]
     Active Substance: ATORVASTATIN
     Indication: BLOOD CHOLESTEROL INCREASED
     Route: 065

REACTIONS (13)
  - Pituitary tumour [Unknown]
  - Blood cholesterol increased [Unknown]
  - Drug ineffective [Unknown]
  - Throat irritation [Recovering/Resolving]
  - Pain [Unknown]
  - Product quality issue [Unknown]
  - Feeling abnormal [Unknown]
  - Increased upper airway secretion [Recovering/Resolving]
  - Hypoaesthesia [Unknown]
  - Malaise [Unknown]
  - Screaming [Unknown]
  - Osteoporosis [Unknown]
  - Tracheal stenosis [Unknown]

NARRATIVE: CASE EVENT DATE: 2004
